FAERS Safety Report 6873849-3 (Version None)
Quarter: 2010Q3

REPORT INFORMATION
  Report Type: 
  Country: None (occurrence: None)
  Receive Date: 20100723
  Receipt Date: 20090417
  Transmission Date: 20110219
  Serious: No
  Sender: FDA-Public Use
  Company Number: US-PFIZER INC-2009178203

PATIENT
  Sex: Female
  Weight: 55.782 kg

DRUGS (6)
  1. CHANTIX [Suspect]
     Indication: SMOKING CESSATION THERAPY
     Dates: start: 20071101, end: 20080101
  2. TAZTIA [Concomitant]
     Dosage: UNK
  3. LIPITOR [Concomitant]
     Dosage: 10MG DAILY
  4. ASPIRIN [Concomitant]
     Dosage: UNK
  5. SPIRIVA [Concomitant]
     Dosage: 18 MEQ DAILY
  6. TIAZAC [Concomitant]
     Dosage: 120MG DAILY

REACTIONS (6)
  - ABDOMINAL DISTENSION [None]
  - CONSTIPATION [None]
  - DEPRESSION [None]
  - DIARRHOEA [None]
  - FLATULENCE [None]
  - GASTROINTESTINAL DISORDER [None]
